FAERS Safety Report 4964732-9 (Version None)
Quarter: 2006Q1

REPORT INFORMATION
  Report Type: 
  Country: None (occurrence: None)
  Receive Date: 20060331
  Receipt Date: 20060322
  Transmission Date: 20060701
  Serious: Yes (Disabling)
  Sender: FDA-Public Use
  Company Number: 200610343BNE

PATIENT
  Age: 56 Year
  Sex: Male
  Weight: 90 kg

DRUGS (9)
  1. ASPIRIN [Suspect]
     Indication: ANTIPLATELET THERAPY
     Dates: start: 20030101, end: 20050324
  2. LANSOPRAZOLE [Suspect]
     Indication: GASTRITIS EROSIVE
     Dates: start: 20050324, end: 20060101
  3. LANSOPRAZOLE [Suspect]
     Indication: OESOPHAGITIS
     Dates: start: 20050324, end: 20060101
  4. SIMVASTATIN [Suspect]
     Indication: BLOOD CHOLESTEROL INCREASED
     Dosage: ORAL
     Route: 048
     Dates: start: 20030701, end: 20060209
  5. SIMVASTATIN [Suspect]
     Indication: MYOCARDIAL INFARCTION
     Dosage: ORAL
     Route: 048
     Dates: start: 20030701, end: 20060209
  6. ATENOLOL [Concomitant]
  7. BISOPROLOL [Concomitant]
  8. CITALOPRAM [Concomitant]
  9. CLOPIDOGREL [Concomitant]

REACTIONS (7)
  - BALANCE DISORDER [None]
  - COORDINATION ABNORMAL [None]
  - DYSPHAGIA [None]
  - GAIT DISTURBANCE [None]
  - GASTRITIS EROSIVE [None]
  - MUSCLE FATIGUE [None]
  - OESOPHAGITIS [None]
